FAERS Safety Report 10101623 (Version 2)
Quarter: 2014Q2

REPORT INFORMATION
  Report Type: Spontaneous
  Country: JP (occurrence: JP)
  Receive Date: 20140424
  Receipt Date: 20140513
  Transmission Date: 20141212
  Serious: Yes (Hospitalization)
  Sender: FDA-Public Use
  Company Number: JP-009507513-1404JPN012075

PATIENT
  Age: 76 Year
  Sex: Female

DRUGS (13)
  1. BONALON [Suspect]
     Indication: OSTEOPOROSIS
     Dosage: 35 MG, QW
     Route: 048
     Dates: end: 20140228
  2. SELBEX [Concomitant]
     Indication: GASTRITIS
     Dosage: 150 MG/DAY
     Route: 048
  3. METHYCOBAL [Concomitant]
     Indication: NEUROPATHY PERIPHERAL
     Dosage: 1500 MICROGRAM/DAY
     Route: 048
  4. SENNOSIDES [Concomitant]
     Indication: CONSTIPATION
     Dosage: 24 MG/DAY
     Route: 048
  5. BASEN OD [Concomitant]
     Indication: DIABETES MELLITUS
     Dosage: 0.9 MG/DAY
  6. AMARYL [Concomitant]
     Indication: DIABETES MELLITUS
     Dosage: 1 MG/DAY
     Route: 048
  7. AZILVA [Concomitant]
     Indication: HYPERTENSION
     Dosage: 40 MG/DAY
     Route: 048
  8. MICARDIS [Concomitant]
     Indication: HYPERTENSION
     Dosage: 40 MG/DAY
     Route: 048
  9. EDIROL [Concomitant]
     Indication: OSTEOPOROSIS
     Dosage: 0.75 MICROGRAM/DAY
     Route: 048
  10. CRESTOR [Concomitant]
     Indication: HYPERCHOLESTEROLAEMIA
     Dosage: 5 MG/DAY
     Route: 048
  11. NEXIUM [Concomitant]
     Indication: GASTRITIS
     Dosage: 20 MG/DAY
     Route: 048
  12. OPALMON [Concomitant]
     Indication: NEUROPATHY PERIPHERAL
     Dosage: 15 MICROGRAM/DAY
     Route: 048
     Dates: end: 20140416
  13. LYRICA [Concomitant]
     Indication: NEUROPATHY PERIPHERAL
     Dosage: 150MG/DAY
     Route: 048
     Dates: end: 20140416

REACTIONS (2)
  - Atypical femur fracture [Recovering/Resolving]
  - Atypical fracture [Not Recovered/Not Resolved]
